FAERS Safety Report 5275451-6 (Version None)
Quarter: 2007Q1

REPORT INFORMATION
  Report Type: 
  Country: None (occurrence: None)
  Receive Date: 20070326
  Receipt Date: 20070312
  Transmission Date: 20070707
  Serious: Yes (Life-Threatening)
  Sender: FDA-Public Use
  Company Number: FR-ROCHE-483678

PATIENT
  Age: 60 Year
  Sex: Female

DRUGS (2)
  1. PEGASYS [Suspect]
     Route: 065
     Dates: start: 20070122
  2. COPEGUS [Suspect]
     Route: 065
     Dates: start: 20070122

REACTIONS (1)
  - ACUTE RESPIRATORY DISTRESS SYNDROME [None]
